FAERS Safety Report 10748526 (Version 4)
Quarter: 2016Q1

REPORT INFORMATION
  Report Type: Spontaneous
  Country: JP (occurrence: JP)
  Receive Date: 20150129
  Receipt Date: 20160201
  Transmission Date: 20160525
  Serious: Yes (Hospitalization, Other)
  Sender: FDA-Public Use
  Company Number: JP-AMGEN-JPNSP2015007138

PATIENT
  Age: 63 Year
  Sex: Male
  Weight: 56 kg

DRUGS (16)
  1. TRAMAL [Concomitant]
     Active Substance: TRAMADOL
     Indication: CANCER PAIN
     Dosage: 50 MG, TID
     Route: 048
  2. GOODMIN [Concomitant]
     Active Substance: BROTIZOLAM
     Indication: CANCER PAIN
     Dosage: 0.25 MG, QD
     Route: 048
  3. LYRICA [Concomitant]
     Active Substance: PREGABALIN
     Indication: CANCER PAIN
     Dosage: 75 MG, QD
     Route: 048
  4. TS-1 [Concomitant]
     Active Substance: GIMERACIL\OTERACIL\TEGAFUR
     Indication: METASTASES TO BONE
     Dosage: 60 MG, BID, 30 TIMES
     Route: 048
     Dates: start: 20121001, end: 20141219
  5. DENOTAS [Concomitant]
     Active Substance: CALCIUM CARBONATE\CHOLECALCIFEROL\MAGNESIUM CARBONATE
     Indication: METASTASES TO BONE
     Dosage: 2 DF, QD
     Route: 048
     Dates: start: 20130108
  6. AVASTIN [Concomitant]
     Active Substance: BEVACIZUMAB
     Indication: RECTAL CANCER
     Dosage: 300 MG, 24 TIMES
     Route: 042
     Dates: start: 20131202, end: 20150109
  7. IRINOTECAN                         /01280202/ [Concomitant]
     Active Substance: IRINOTECAN
     Indication: RECTAL CANCER
  8. GOSHAJINKIGAN [Concomitant]
     Active Substance: HERBALS
     Indication: CANCER PAIN
     Dosage: 25 MG, TID
     Route: 048
  9. AMLODIPINE                         /00972402/ [Concomitant]
     Active Substance: AMLODIPINE BESYLATE
     Dosage: UNK
     Route: 065
  10. IRINOTECAN                         /01280202/ [Concomitant]
     Active Substance: IRINOTECAN
     Indication: METASTASES TO BONE
     Dosage: 140 MG, QD, 30 TIMES
     Route: 041
     Dates: start: 20121001, end: 20150109
  11. LASIX [Concomitant]
     Active Substance: FUROSEMIDE
     Indication: HYPERTENSION
     Dosage: 20 MG, QD
     Route: 048
  12. TS-1 [Concomitant]
     Active Substance: GIMERACIL\OTERACIL\TEGAFUR
     Indication: RECTAL CANCER
  13. ALDACTONE A [Concomitant]
     Active Substance: SPIRONOLACTONE
     Indication: HYPERTENSION
     Dosage: 25 MG, TID
     Route: 048
     Dates: start: 20150109
  14. RANMARK [Suspect]
     Active Substance: DENOSUMAB
     Indication: METASTASES TO BONE
     Dosage: 120 MG, QD
     Route: 058
     Dates: start: 20130108, end: 20141024
  15. LOXOPROFEN [Concomitant]
     Active Substance: LOXOPROFEN
     Indication: CANCER PAIN
     Dosage: 60 MG, TID
     Route: 048
  16. MUCOSTA [Concomitant]
     Active Substance: REBAMIPIDE
     Indication: CANCER PAIN
     Dosage: 100 MG, TID
     Route: 048

REACTIONS (3)
  - Septic shock [Recovered/Resolved]
  - Sinusitis [Not Recovered/Not Resolved]
  - Osteonecrosis of jaw [Not Recovered/Not Resolved]

NARRATIVE: CASE EVENT DATE: 20141219
